FAERS Safety Report 5018560-9 (Version None)
Quarter: 2006Q2

REPORT INFORMATION
  Report Type: 
  Country: None (occurrence: None)
  Receive Date: 20060414
  Receipt Date: 20051220
  Transmission Date: 20061013
  Serious: No
  Sender: FDA-Public Use
  Company Number: 2005SP004478

PATIENT
  Sex: Male

DRUGS (6)
  1. LUNESTA [Suspect]
     Indication: INSOMNIA
     Dosage: 3 MG;PRN;ORAL
     Route: 048
     Dates: start: 20051101
  2. ZESTRIL [Concomitant]
  3. ORETIC [Concomitant]
  4. GLUCOPHAGE [Concomitant]
  5. ACIPHEX [Concomitant]
  6. CLARITIN [Concomitant]

REACTIONS (1)
  - DYSGEUSIA [None]
